FAERS Safety Report 9914920 (Version 1)
Quarter: 2014Q1

REPORT INFORMATION
  Report Type: Spontaneous
  Country: US (occurrence: US)
  Receive Date: 20140220
  Receipt Date: 20140220
  Transmission Date: 20141002
  Serious: No
  Sender: FDA-Public Use
  Company Number: US-PFIZER INC-2014044793

PATIENT
  Age: 64 Year
  Sex: Female
  Weight: 109.75 kg

DRUGS (4)
  1. DIFLUCAN [Suspect]
     Indication: ORAL CANDIDIASIS
     Dosage: 500 MG, 3X/DAY
     Dates: start: 201312, end: 201312
  2. LASIX [Concomitant]
     Indication: RENAL DISORDER
     Dosage: 80 MG, 1X/DAY
  3. AMILORIDE [Concomitant]
     Indication: RENAL DISORDER
     Dosage: 10 MG, 1X/DAY
  4. WARFARIN [Concomitant]
     Dosage: UNK

REACTIONS (3)
  - Intentional drug misuse [Unknown]
  - Prothrombin time abnormal [Unknown]
  - International normalised ratio abnormal [Unknown]
